FAERS Safety Report 9455524 (Version 1)
Quarter: 2013Q3

REPORT INFORMATION
  Report Type: Spontaneous
  Country: DE (occurrence: DE)
  Receive Date: 20130813
  Receipt Date: 20130813
  Transmission Date: 20140515
  Serious: Yes (Other)
  Sender: FDA-Public Use
  Company Number: DE-PFIZER INC-2013232315

PATIENT
  Age: 73 Year
  Sex: Male

DRUGS (1)
  1. LYRICA [Suspect]
     Indication: POLYNEUROPATHY
     Dosage: 150 MG, 2X/DAY
     Dates: start: 201207

REACTIONS (1)
  - Immune thrombocytopenic purpura [Unknown]
